FAERS Safety Report 4587834-8 (Version None)
Quarter: 2005Q1

REPORT INFORMATION
  Report Type: 
  Country: None (occurrence: None)
  Receive Date: 20050125
  Receipt Date: 20040901
  Transmission Date: 20050727
  Serious: No
  Sender: FDA-Public Use
  Company Number: USA040977201

PATIENT
  Age: 60 Year
  Sex: Female

DRUGS (4)
  1. FORTEO [Suspect]
     Indication: OSTEOPOROSIS
     Dates: start: 20040401
  2. CALCIUM CARBONATE [Concomitant]
  3. MULTI-VITAMINS [Concomitant]
  4. ENSURE [Concomitant]

REACTIONS (1)
  - CRYSTAL URINE [None]
